FAERS Safety Report 20900695 (Version 1)
Quarter: 2022Q2

REPORT INFORMATION
  Report Type: Spontaneous
  Country: US (occurrence: None)
  Receive Date: 20220531
  Receipt Date: 20220531
  Transmission Date: 20220720
  Serious: Yes (Death, Hospitalization)
  Sender: FDA-Public Use
  Company Number: None

PATIENT
  Age: 64 Year
  Sex: Male
  Weight: 95.85 kg

DRUGS (6)
  1. CABOMETYX [Suspect]
     Active Substance: CABOZANTINIB S-MALATE
     Indication: Renal cell carcinoma
     Dosage: OTHER QUANTITY : 1 TABLET(S);?FREQUENCY : DAILY;?
     Route: 048
  2. TRULICITY [Concomitant]
     Active Substance: DULAGLUTIDE
  3. AMLODAPINE [Concomitant]
  4. BRILINTA [Concomitant]
     Active Substance: TICAGRELOR
  5. ASPIRIN [Concomitant]
     Active Substance: ASPIRIN
  6. SPIROALDACTONE [Concomitant]

REACTIONS (3)
  - Pancreatitis [None]
  - Liver function test increased [None]
  - Metastases to liver [None]

NARRATIVE: CASE EVENT DATE: 20220314
